FAERS Safety Report 17748764 (Version 1)
Quarter: 2020Q2

REPORT INFORMATION
  Report Type: Spontaneous
  Country: US (occurrence: US)
  Receive Date: 20200505
  Receipt Date: 20200505
  Transmission Date: 20200714
  Serious: No
  Sender: FDA-Public Use
  Company Number: US-ROCHE-2483601

PATIENT
  Sex: Male

DRUGS (9)
  1. METFORMIN HCL [Concomitant]
     Active Substance: METFORMIN HYDROCHLORIDE
  2. PRIMIDONE. [Concomitant]
     Active Substance: PRIMIDONE
  3. ASPIRIN 81 [Concomitant]
     Active Substance: ASPIRIN
  4. BENZONATATE. [Concomitant]
     Active Substance: BENZONATATE
  5. TRULICITY [Concomitant]
     Active Substance: DULAGLUTIDE
  6. ESBRIET [Suspect]
     Active Substance: PIRFENIDONE
     Indication: PRODUCT USED FOR UNKNOWN INDICATION
     Dosage: 801 MG TAB BY MOUTH  3 TIMES A DAY WITH MEAL ; ONGOING- YES
     Route: 048
     Dates: start: 20181019
  7. LIPITOR [Concomitant]
     Active Substance: ATORVASTATIN CALCIUM
  8. MELOXICAM. [Concomitant]
     Active Substance: MELOXICAM
  9. ESOMEPRAZOLE. [Concomitant]
     Active Substance: ESOMEPRAZOLE MAGNESIUM

REACTIONS (2)
  - Middle insomnia [Not Recovered/Not Resolved]
  - Hyperhidrosis [Not Recovered/Not Resolved]
